FAERS Safety Report 24797870 (Version 1)
Quarter: 2025Q1

REPORT INFORMATION
  Report Type: Report from Study
  Country: PK (occurrence: PK)
  Receive Date: 20250102
  Receipt Date: 20250102
  Transmission Date: 20250408
  Serious: Yes (Death)
  Sender: ROCHE
  Company Number: PK-ROCHE-10000013322

PATIENT
  Age: 44 Year
  Sex: Female

DRUGS (6)
  1. HERCEPTIN [Suspect]
     Active Substance: TRASTUZUMAB
     Indication: Breast cancer
     Route: 058
     Dates: start: 20240525, end: 20241019
  2. HERCEPTIN [Suspect]
     Active Substance: TRASTUZUMAB
     Route: 058
     Dates: start: 20240525, end: 20241019
  3. HERCEPTIN [Suspect]
     Active Substance: TRASTUZUMAB
     Route: 058
     Dates: start: 20240525, end: 20241019
  4. HERCEPTIN [Suspect]
     Active Substance: TRASTUZUMAB
     Route: 058
     Dates: start: 20240525, end: 20241019
  5. HERCEPTIN [Suspect]
     Active Substance: TRASTUZUMAB
     Route: 058
     Dates: start: 20240525, end: 20241019
  6. HERCEPTIN [Suspect]
     Active Substance: TRASTUZUMAB
     Route: 058
     Dates: start: 20240525, end: 20241019

REACTIONS (1)
  - Neoplasm malignant [Fatal]
